FAERS Safety Report 7674043-9 (Version None)
Quarter: 2011Q3

REPORT INFORMATION
  Report Type: 
  Country: None (occurrence: None)
  Receive Date: 20110810
  Receipt Date: 20110804
  Transmission Date: 20111222
  Serious: Yes (Hospitalization)
  Sender: FDA-Public Use
  Company Number: IT-AMGEN-KDC385929

PATIENT
  Age: 56 Year
  Sex: Male

DRUGS (9)
  1. CISPLATIN [Concomitant]
     Dosage: 75 MG/KG, UNK
     Route: 042
     Dates: start: 20080618
  2. LIDOCAINE [Concomitant]
     Dosage: UNK UNK, PRN
     Route: 061
     Dates: start: 20080723, end: 20080801
  3. CIPROFLAXACIN [Concomitant]
     Dosage: 500 MG, BID
     Route: 048
     Dates: start: 20080729, end: 20080804
  4. ALOE VERA [Concomitant]
     Dosage: UNK UNK, PRN
     Dates: start: 20080716, end: 20081022
  5. TRIATEC COMP [Concomitant]
     Dosage: 2.5 MG, QD
     Route: 048
     Dates: start: 20080616
  6. PANITUMUMAB [Suspect]
     Indication: SQUAMOUS CELL CARCINOMA
     Dosage: 9 MG/KG, Q3WK
     Route: 042
     Dates: start: 20080618
  7. DOXYCYCLINE HYCLATE [Concomitant]
     Dosage: UNK UNK, BID
     Route: 048
     Dates: start: 20080701, end: 20080801
  8. ORAMORPH SR [Concomitant]
     Dosage: 10 MG, TID
     Route: 048
     Dates: start: 20080729, end: 20080801
  9. ACETAMINOPHEN [Concomitant]
     Dosage: 1000 MG, PRN
     Route: 042
     Dates: start: 20080729, end: 20080805

REACTIONS (2)
  - RADIATION SKIN INJURY [None]
  - PYREXIA [None]
